FAERS Safety Report 4451900-8 (Version None)
Quarter: 2004Q3

REPORT INFORMATION
  Report Type: 
  Country: None (occurrence: None)
  Receive Date: 20040917
  Receipt Date: 20040906
  Transmission Date: 20050211
  Serious: Yes (Life-Threatening)
  Sender: FDA-Public Use
  Company Number: GB-JNJFOC-20040805567

PATIENT
  Sex: Female

DRUGS (10)
  1. REMICADE [Suspect]
     Indication: RHEUMATOID ARTHRITIS
     Route: 042
  2. METHOTREXATE [Concomitant]
  3. SYSTEMIC STEROIDS [Concomitant]
  4. MELOXICAM [Concomitant]
  5. ATENOLOL [Concomitant]
  6. VERAPAMIL [Concomitant]
  7. THYROXINE [Concomitant]
  8. FOLIC ACID [Concomitant]
  9. PREMPAK C [Concomitant]
  10. PREMPAK C [Concomitant]

REACTIONS (4)
  - CHRONIC OBSTRUCTIVE AIRWAYS DISEASE [None]
  - CYANOSIS CENTRAL [None]
  - DISEASE RECURRENCE [None]
  - LOWER RESPIRATORY TRACT INFECTION [None]
